FAERS Safety Report 7533575-4 (Version None)
Quarter: 2011Q2

REPORT INFORMATION
  Report Type: 
  Country: None (occurrence: None)
  Receive Date: 20110608
  Receipt Date: 20060214
  Transmission Date: 20111010
  Serious: Yes (Other)
  Sender: FDA-Public Use
  Company Number: PHMT2006CA00701

PATIENT
  Sex: Female

DRUGS (2)
  1. CLOZAPINE [Suspect]
     Dates: start: 20060125, end: 20060208
  2. ANTIBIOTICS [Concomitant]
     Dates: start: 20060208

REACTIONS (3)
  - CHILLS [None]
  - FALL [None]
  - PNEUMONIA [None]
